FAERS Safety Report 25996252 (Version 1)
Quarter: 2025Q4

REPORT INFORMATION
  Report Type: Spontaneous
  Country: US (occurrence: US)
  Receive Date: 20251104
  Receipt Date: 20251104
  Transmission Date: 20260118
  Serious: No
  Sender: AMGEN
  Company Number: US-AMGEN-USASP2025214405

PATIENT
  Age: 53 Year
  Sex: Male

DRUGS (2)
  1. REPATHA [Suspect]
     Active Substance: EVOLOCUMAB
     Indication: Blood cholesterol increased
     Dosage: 140 MILLIGRAM, Q2WK (PRODUCT STRENGTH-140MG)
     Route: 058
     Dates: start: 20250912
  2. REPATHA [Suspect]
     Active Substance: EVOLOCUMAB
     Indication: Corneal disorder

REACTIONS (5)
  - Contusion [Recovered/Resolved]
  - Product communication issue [Unknown]
  - Device difficult to use [Unknown]
  - Off label use [Unknown]
  - Wrong technique in product usage process [Unknown]

NARRATIVE: CASE EVENT DATE: 20251024
